FAERS Safety Report 16436291 (Version 2)
Quarter: 2019Q3

REPORT INFORMATION
  Report Type: Spontaneous
  Country: US (occurrence: US)
  Receive Date: 20190614
  Receipt Date: 20190724
  Transmission Date: 20191004
  Serious: No
  Sender: FDA-Public Use
  Company Number: US-JNJFOC-20190527048

PATIENT
  Sex: Female
  Weight: 108.96 kg

DRUGS (6)
  1. SIMVASTATIN. [Concomitant]
     Active Substance: SIMVASTATIN
  2. LEVEMIR [Concomitant]
     Active Substance: INSULIN DETEMIR
  3. TREMFYA [Suspect]
     Active Substance: GUSELKUMAB
     Indication: PSORIASIS
     Route: 058
     Dates: start: 201804
  4. NOVOLOG [Concomitant]
     Active Substance: INSULIN ASPART
  5. GABAPENTIN. [Concomitant]
     Active Substance: GABAPENTIN
  6. LISINOPRIL. [Concomitant]
     Active Substance: LISINOPRIL

REACTIONS (3)
  - Product dose omission [Unknown]
  - Complication associated with device [Unknown]
  - Psoriasis [Unknown]
